FAERS Safety Report 11011185 (Version 2)
Quarter: 2022Q1

REPORT INFORMATION
  Report Type: Spontaneous
  Country: US (occurrence: None)
  Receive Date: 20150410
  Receipt Date: 20220120
  Transmission Date: 20220423
  Serious: Yes (Other)
  Sender: FDA-Public Use
  Company Number: 2014SE55360

PATIENT
  Age: 62 Year
  Sex: Female
  Weight: 128.8 kg

DRUGS (5)
  1. BYDUREON [Suspect]
     Active Substance: EXENATIDE
     Indication: Type 2 diabetes mellitus
     Route: 058
  2. AMARYL [Concomitant]
     Active Substance: GLIMEPIRIDE
  3. JANUMET [Concomitant]
     Active Substance: METFORMIN HYDROCHLORIDE\SITAGLIPTIN PHOSPHATE
  4. METOPROLOL [Concomitant]
     Active Substance: METOPROLOL
  5. ELIQUIS [Concomitant]
     Active Substance: APIXABAN

REACTIONS (3)
  - Atrial fibrillation [Unknown]
  - Incorrect dose administered [Unknown]
  - Injection site mass [Unknown]

NARRATIVE: CASE EVENT DATE: 20140701
